FAERS Safety Report 19159729 (Version 2)
Quarter: 2021Q2

REPORT INFORMATION
  Report Type: Spontaneous
  Country: US (occurrence: US)
  Receive Date: 20210420
  Receipt Date: 20210524
  Transmission Date: 20210717
  Serious: No
  Sender: FDA-Public Use
  Company Number: US-TEVA-2021-US-1899372

PATIENT
  Age: 73 Year
  Sex: Female

DRUGS (1)
  1. NEFAZODONE HYDROCHLORIDE. [Suspect]
     Active Substance: NEFAZODONE HYDROCHLORIDE
     Dosage: TOOK ONE AND A HALF TABLETS AT BEDTIME AND MAY HAVE SPLIT THE TABLET
     Route: 065
     Dates: end: 202104

REACTIONS (3)
  - Wrong technique in product usage process [Unknown]
  - Withdrawal syndrome [Recovering/Resolving]
  - Product supply issue [Unknown]

NARRATIVE: CASE EVENT DATE: 202104
